FAERS Safety Report 9160777 (Version 2)
Quarter: 2013Q1

REPORT INFORMATION
  Report Type: Report from Study
  Country: FR (occurrence: FR)
  Receive Date: 20130313
  Receipt Date: 20130327
  Transmission Date: 20140127
  Serious: Yes (Other)
  Sender: FDA-Public Use
  Company Number: FR-PFIZER INC-2013052849

PATIENT
  Age: 70 Year
  Sex: Male
  Weight: 54.7 kg

DRUGS (5)
  1. SUTENT [Suspect]
     Indication: NEUROENDOCRINE TUMOUR
     Dosage: 37.5 MG, UNK
     Route: 048
     Dates: start: 20130110
  2. LYRICA [Suspect]
     Dosage: 50 MG, 2X/DAY (ONE IN THE MORNING AND ONCE IN THE EVENING)
     Route: 048
     Dates: start: 20121218
  3. OLMETEC [Concomitant]
     Indication: HYPERTENSION
     Dosage: 300 MG, 1X/DAY
     Route: 048
     Dates: start: 20130124
  4. LERCAN [Concomitant]
     Indication: HYPERTENSION
     Dosage: 10 MG, 1X/DAY
     Route: 048
     Dates: start: 201204
  5. PANTOPRAZOLE [Concomitant]
     Indication: GASTRITIS
     Dosage: 40 MG, 1X/DAY
     Route: 048
     Dates: start: 201204

REACTIONS (1)
  - Lipase increased [Not Recovered/Not Resolved]
